FAERS Safety Report 9361145 (Version 1)
Quarter: 2013Q2

REPORT INFORMATION
  Report Type: Spontaneous
  Country: FR (occurrence: FR)
  Receive Date: 20130621
  Receipt Date: 20130621
  Transmission Date: 20140414
  Serious: Yes (Hospitalization)
  Sender: FDA-Public Use
  Company Number: FR-PFIZER INC-2013184884

PATIENT
  Age: 49 Year
  Sex: Male

DRUGS (2)
  1. INIPOMP [Suspect]
     Indication: OESOPHAGITIS
     Dosage: 20 MG, UNK
     Route: 048
     Dates: start: 201303, end: 20130515
  2. XANAX [Concomitant]
     Dosage: 0.25 MG, UNK

REACTIONS (5)
  - Blood creatine phosphokinase increased [Recovered/Resolved]
  - Haemoptysis [Unknown]
  - Vertigo [Unknown]
  - Asthenia [Unknown]
  - Myalgia [Unknown]
